FAERS Safety Report 10516333 (Version 2)
Quarter: 2014Q4

REPORT INFORMATION
  Report Type: Spontaneous
  Country: US (occurrence: US)
  Receive Date: 20141014
  Receipt Date: 20141014
  Transmission Date: 20150528
  Serious: Yes (Other)
  Sender: FDA-Public Use
  Company Number: US-MYLANLABS-2008S1003013

PATIENT

DRUGS (6)
  1. MERCAPTAMINE BITARTRATE [Suspect]
     Active Substance: CYSTEAMINE
     Dosage: 30 MG/KG, QD
     Route: 048
  2. MERCAPTAMINE BITARTRATE [Suspect]
     Active Substance: CYSTEAMINE
     Dosage: 100 MG, QD
     Route: 048
  3. MERCAPTAMINE BITARTRATE [Suspect]
     Active Substance: CYSTEAMINE
     Indication: CYSTINOSIS
     Dosage: 25 MG, QD
     Route: 048
  4. MERCAPTAMINE BITARTRATE [Suspect]
     Active Substance: CYSTEAMINE
     Dosage: 20 MG/KG, QD
     Route: 048
  5. MERCAPTAMINE BITARTRATE [Suspect]
     Active Substance: CYSTEAMINE
     Dosage: 40 MG/KG,QD
     Route: 048
  6. MERCAPTAMINE BITARTRATE [Suspect]
     Active Substance: CYSTEAMINE
     Dosage: 600 MG, QD
     Route: 048

REACTIONS (6)
  - Nodule [Not Recovered/Not Resolved]
  - Transaminases increased [Recovered/Resolved]
  - Vomiting [Recovered/Resolved with Sequelae]
  - Blood gastrin increased [Not Recovered/Not Resolved]
  - Duodenitis [None]
  - Erosive duodenitis [Not Recovered/Not Resolved]
